FAERS Safety Report 4665087-X (Version None)
Quarter: 2005Q2

REPORT INFORMATION
  Report Type: 
  Country: None (occurrence: None)
  Receive Date: 20050517
  Receipt Date: 20050307
  Transmission Date: 20051028
  Serious: No
  Sender: FDA-Public Use
  Company Number: S05-USA-01202-01

PATIENT
  Age: 64 Year
  Sex: Female

DRUGS (8)
  1. NAMENDA [Suspect]
     Indication: DEMENTIA
     Dosage: 10 MG BID PO
     Route: 048
     Dates: start: 20040201
  2. NAMENDA [Suspect]
     Indication: DEMENTIA
     Dates: start: 20040201, end: 20040201
  3. ZOLOFT [Concomitant]
  4. SEROQUEL [Concomitant]
  5. ABILIFY [Concomitant]
  6. LEVOTHYROXINE [Concomitant]
  7. TRIAMTERENE [Concomitant]
  8. PREVACID [Concomitant]

REACTIONS (1)
  - DYSPHAGIA [None]
